FAERS Safety Report 11957787 (Version 2)
Quarter: 2016Q1

REPORT INFORMATION
  Report Type: Spontaneous
  Country: US (occurrence: US)
  Receive Date: 20160126
  Receipt Date: 20160316
  Transmission Date: 20160526
  Serious: Yes (Hospitalization, Other)
  Sender: FDA-Public Use
  Company Number: US-TEVA-627893USA

PATIENT
  Age: 48 Year
  Sex: Male
  Weight: 85.81 kg

DRUGS (6)
  1. KLONOPIN [Suspect]
     Active Substance: CLONAZEPAM
     Route: 065
  2. ALZOPRAM [Suspect]
     Active Substance: ALPRAZOLAM
     Dosage: .5 MILLIGRAM DAILY;
     Route: 065
  3. GLIMEPIRIDE. [Suspect]
     Active Substance: GLIMEPIRIDE
     Route: 065
  4. BUSPAR [Suspect]
     Active Substance: BUSPIRONE HYDROCHLORIDE
     Dosage: 100 MILLIGRAM DAILY;
     Route: 065
     Dates: start: 20151210
  5. PRISTIQ EXTENDED RELEASE [Suspect]
     Active Substance: DESVENLAFAXINE SUCCINATE
     Dosage: 100 MILLIGRAM DAILY;
     Route: 065
     Dates: start: 2009
  6. NORCO [Suspect]
     Active Substance: ACETAMINOPHEN\HYDROCODONE BITARTRATE
     Route: 065

REACTIONS (4)
  - Amnesia [Recovered/Resolved]
  - Weight decreased [Unknown]
  - Shock hypoglycaemic [Unknown]
  - Blood glucose decreased [Unknown]

NARRATIVE: CASE EVENT DATE: 201510
